FAERS Safety Report 8524679 (Version 3)
Quarter: 2013Q2

REPORT INFORMATION
  Report Type: Report from Study
  Country: DE (occurrence: DE)
  Receive Date: 20120422
  Receipt Date: 20130606
  Transmission Date: 20140414
  Serious: Yes (Life-Threatening)
  Sender: FDA-Public Use
  Company Number: CH-BRISTOL-MYERS SQUIBB COMPANY-16536021

PATIENT
  Age: 49 Year
  Sex: Male

DRUGS (3)
  1. CETUXIMAB [Suspect]
     Indication: OESOPHAGEAL CARCINOMA
     Dosage: INFUSION, RECENT INFUSION: 20MAR12
     Route: 042
     Dates: start: 20120220
  2. CISPLATIN FOR INJ [Suspect]
     Indication: OESOPHAGEAL CARCINOMA
     Dosage: RECENT INFUSION: 20MAR12
     Route: 042
     Dates: start: 20120220
  3. DOCETAXEL [Suspect]
     Indication: OESOPHAGEAL CARCINOMA
     Dosage: RECENT INFUSION : 23MAR12
     Route: 042
     Dates: start: 20120220

REACTIONS (2)
  - Pelvic venous thrombosis [Recovered/Resolved]
  - Jugular vein thrombosis [Recovered/Resolved]
